FAERS Safety Report 19689561 (Version 1)
Quarter: 2021Q3

REPORT INFORMATION
  Report Type: Report from Study
  Country: PL (occurrence: PL)
  Receive Date: 20210812
  Receipt Date: 20210812
  Transmission Date: 20211014
  Serious: Yes (Death, Hospitalization)
  Sender: FDA-Public Use
  Company Number: PL-PFIZER INC-2008150942

PATIENT
  Age: 78 Year
  Sex: Female
  Weight: 49 kg

DRUGS (3)
  1. PACLITAXEL. [Suspect]
     Active Substance: PACLITAXEL
     Indication: NON-SMALL CELL LUNG CANCER
     Dosage: 293 MG, EVERY 3 WEEKS
     Route: 042
     Dates: start: 20081124, end: 20081124
  2. AXITINIB [Suspect]
     Active Substance: AXITINIB
     Indication: NON-SMALL CELL LUNG CANCER
     Dosage: 5 MG, 2X/DAY
     Route: 048
     Dates: start: 20081124, end: 20081204
  3. CARBOPLATIN. [Suspect]
     Active Substance: CARBOPLATIN
     Indication: NON-SMALL CELL LUNG CANCER
     Dosage: 366 MG, EVERY 3 WEEKS
     Route: 042
     Dates: start: 20081124, end: 20081124

REACTIONS (1)
  - Respiratory distress [Fatal]
